FAERS Safety Report 16610305 (Version 1)
Quarter: 2019Q3

REPORT INFORMATION
  Report Type: Spontaneous
  Country: US (occurrence: US)
  Receive Date: 20190719
  Receipt Date: 20190719
  Transmission Date: 20191004
  Serious: Yes (Other)
  Sender: FDA-Public Use
  Company Number: None

PATIENT
  Age: 60 Year
  Sex: Female
  Weight: 107 kg

DRUGS (1)
  1. GLATIRAMER ACETATE. [Suspect]
     Active Substance: GLATIRAMER ACETATE
     Indication: MULTIPLE SCLEROSIS
     Route: 057

REACTIONS (8)
  - Injection site erythema [None]
  - Dizziness [None]
  - Anxiety [None]
  - Headache [None]
  - Flushing [None]
  - Dysgeusia [None]
  - Injection site swelling [None]
  - Hyperhidrosis [None]

NARRATIVE: CASE EVENT DATE: 20190619
